FAERS Safety Report 8063066-6 (Version None)
Quarter: 2012Q1

REPORT INFORMATION
  Report Type: 
  Country: None (occurrence: None)
  Receive Date: 20120123
  Receipt Date: 20120113
  Transmission Date: 20120608
  Serious: Yes (Other)
  Sender: FDA-Public Use
  Company Number: GR-ROCHE-1030086

PATIENT

DRUGS (3)
  1. XELODA [Suspect]
     Indication: COLORECTAL CANCER METASTATIC
  2. OXALIPLATIN [Suspect]
     Indication: COLORECTAL CANCER METASTATIC
  3. AVASTIN [Suspect]
     Indication: COLORECTAL CANCER METASTATIC

REACTIONS (8)
  - DIARRHOEA [None]
  - FATIGUE [None]
  - CONSTIPATION [None]
  - NEUROTOXICITY [None]
  - HYPERTENSION [None]
  - NEUTROPENIA [None]
  - VOMITING [None]
  - NAUSEA [None]
